FAERS Safety Report 4401234-2 (Version None)
Quarter: 2004Q3

REPORT INFORMATION
  Report Type: 
  Country: None (occurrence: None)
  Receive Date: 20040907
  Receipt Date: 20040113
  Transmission Date: 20050211
  Serious: No
  Sender: FDA-Public Use
  Company Number: US-BRISTOL-MYERS SQUIBB COMPANY-12477071

PATIENT
  Sex: Male

DRUGS (7)
  1. COUMADIN [Suspect]
     Indication: ATRIAL FIBRILLATION
     Dosage: DOSAGE RECENTLY INCREASED TO 6MG 4DAYS/WEEK AND 4.5MG 3DAYS/WEEK.
     Route: 048
     Dates: start: 19991101
  2. PRINIVIL [Concomitant]
  3. AMIODARONE HCL [Concomitant]
  4. PREDNISONE [Concomitant]
  5. CALAN [Concomitant]
  6. KLOR-CON [Concomitant]
  7. IMURAN [Concomitant]

REACTIONS (1)
  - INTERNATIONAL NORMALISED RATIO DECREASED [None]
